FAERS Safety Report 23916052 (Version 4)
Quarter: 2024Q4

REPORT INFORMATION
  Report Type: Spontaneous
  Country: US (occurrence: US)
  Receive Date: 20240529
  Receipt Date: 20241001
  Transmission Date: 20250115
  Serious: Yes (Other)
  Sender: SANOFI AVENTIS
  Company Number: US-SA-SAC20240522000948

PATIENT
  Age: 29 Year
  Sex: Male

DRUGS (2)
  1. ELOCTATE [Suspect]
     Active Substance: EFMOROCTOCOG ALFA
     Indication: Haemorrhage
     Dosage: 6000 IU (+/- 10%), EVERY 24 HOURS AS NEEDED
     Route: 041
  2. ELOCTATE [Suspect]
     Active Substance: EFMOROCTOCOG ALFA
     Indication: Haemorrhage
     Dosage: 6000 IU (+/- 10%), EVERY 24 HOURS AS NEEDED
     Route: 041

REACTIONS (4)
  - Haemarthrosis [Unknown]
  - Haemorrhage [Unknown]
  - Joint injury [Unknown]
  - Traumatic haemorrhage [Unknown]

NARRATIVE: CASE EVENT DATE: 20240429
